FAERS Safety Report 18349398 (Version 1)
Quarter: 2020Q4

REPORT INFORMATION
  Report Type: Spontaneous
  Country: AU (occurrence: AU)
  Receive Date: 20201006
  Receipt Date: 20201006
  Transmission Date: 20210114
  Serious: Yes (Life-Threatening, Other)
  Sender: FDA-Public Use
  Company Number: AU-PFIZER INC-2020376804

PATIENT
  Age: 47 Year
  Sex: Male

DRUGS (19)
  1. SUXAMETHONIUM [Concomitant]
     Active Substance: SUCCINYLCHOLINE
     Indication: ANAESTHESIA
     Dosage: 100 MG
  2. NEOSTIGMINE. [Concomitant]
     Active Substance: NEOSTIGMINE METHYLSULFATE
     Dosage: 5 MG
  3. QUININE [Interacting]
     Active Substance: QUININE
     Dosage: 600 MG, 3X/DAY (2 DOSES)
     Route: 042
  4. QUININE [Interacting]
     Active Substance: QUININE
     Dosage: 600 MG
     Route: 042
  5. PENICILLIN G [BENZYLPENICILLIN] [Suspect]
     Active Substance: PENICILLIN G
     Dosage: 2000000 IU
  6. PANCURONIUM [Concomitant]
     Active Substance: PANCURONIUM
     Dosage: 2 MG
  7. QUININE [Interacting]
     Active Substance: QUININE
     Dosage: 500 MG, (500 MG OVER 6 HOURS)
     Route: 042
  8. PANCURONIUM [Concomitant]
     Active Substance: PANCURONIUM
     Indication: ANAESTHESIA
     Dosage: 6 MG
  9. NITROUS OXIDE. [Concomitant]
     Active Substance: NITROUS OXIDE
     Indication: ANAESTHESIA
  10. THIOPENTONE SODIUM [Concomitant]
     Active Substance: THIOPENTAL SODIUM
     Indication: ANAESTHESIA
     Dosage: 300 MG
  11. SUXAMETHONIUM [Concomitant]
     Active Substance: SUCCINYLCHOLINE
     Dosage: 75 MG
  12. SALINE [SODIUM CHLORIDE] [Concomitant]
     Active Substance: SODIUM CHLORIDE
     Dosage: 500 ML, 500 ML (TO RUN OVER 6 HOURS)
  13. THIOPENTONE SODIUM [Concomitant]
     Active Substance: THIOPENTAL SODIUM
     Dosage: 100 MG
  14. ATROPINE. [Concomitant]
     Active Substance: ATROPINE
     Dosage: 1.2 MG
  15. MORPHINE [Concomitant]
     Active Substance: MORPHINE
     Dosage: 2 MG, (2 MG/HOUR)
  16. GENTAMICIN SULFATE. [Suspect]
     Active Substance: GENTAMICIN SULFATE
     Dosage: 80 MG
     Route: 042
  17. QUININE [Interacting]
     Active Substance: QUININE
     Dosage: 600 MG, 3X/DAY (3 DOSES)
     Route: 042
  18. NALOXONE [Concomitant]
     Active Substance: NALOXONE
     Dosage: 0.2 MG
     Route: 042
  19. GENTAMICIN SULFATE. [Interacting]
     Active Substance: GENTAMICIN SULFATE
     Dosage: UNK (FIVE HOURS AFTER A SINGLE BOLUS INJECTION)

REACTIONS (3)
  - Neuromuscular blockade [Recovering/Resolving]
  - Drug interaction [Unknown]
  - Recurrence of neuromuscular blockade [Recovering/Resolving]
